FAERS Safety Report 6371564-6 (Version None)
Quarter: 2009Q3

REPORT INFORMATION
  Report Type: 
  Country: None (occurrence: None)
  Receive Date: 20090923
  Receipt Date: 20080107
  Transmission Date: 20100115
  Serious: No
  Sender: FDA-Public Use
  Company Number: US-ASTRAZENECA-2007UW25107

PATIENT
  Age: 534 Month
  Sex: Female
  Weight: 69.9 kg

DRUGS (11)
  1. SEROQUEL [Suspect]
     Indication: DEPRESSION
     Route: 048
     Dates: start: 20060324
  2. SEROQUEL [Suspect]
     Indication: BIPOLAR DISORDER
     Route: 048
     Dates: start: 20060324
  3. SEROQUEL [Suspect]
     Dosage: 100-300 MG
     Route: 048
     Dates: start: 20060101, end: 20070601
  4. SEROQUEL [Suspect]
     Dosage: 100-300 MG
     Route: 048
     Dates: start: 20060101, end: 20070601
  5. AMBIEN [Concomitant]
     Route: 065
  6. DEPAKOTE [Concomitant]
     Dosage: 250 MG - 500 MG
     Route: 065
  7. CYMBALTA [Concomitant]
     Route: 065
  8. RISPERDAL [Concomitant]
     Dosage: 1MG-2MG
     Route: 065
  9. MENTAX [Concomitant]
     Route: 065
  10. JANUVIA [Concomitant]
     Route: 065
  11. JANUMET [Concomitant]
     Route: 065

REACTIONS (4)
  - DIABETES MELLITUS [None]
  - SCIATICA [None]
  - URINARY TRACT INFECTION [None]
  - WEIGHT INCREASED [None]
